FAERS Safety Report 7232216-3 (Version None)
Quarter: 2011Q1

REPORT INFORMATION
  Report Type: 
  Country: None (occurrence: None)
  Receive Date: 20110119
  Receipt Date: 20110110
  Transmission Date: 20110831
  Serious: No
  Sender: FDA-Public Use
  Company Number: US-BIOGENIDEC-2011BI001502

PATIENT
  Age: 30 Year
  Sex: Female

DRUGS (1)
  1. TYSABRI [Suspect]
     Indication: MULTIPLE SCLEROSIS
     Route: 042
     Dates: start: 20100614

REACTIONS (9)
  - EAR DISCOMFORT [None]
  - VITREOUS FLOATERS [None]
  - PHOTOPHOBIA [None]
  - MULTIPLE SCLEROSIS [None]
  - PHOTOSENSITIVITY REACTION [None]
  - CONTUSION [None]
  - ARTHRALGIA [None]
  - BACK PAIN [None]
  - FATIGUE [None]
